FAERS Safety Report 17813772 (Version 5)
Quarter: 2021Q3

REPORT INFORMATION
  Report Type: Spontaneous
  Country: US (occurrence: US)
  Receive Date: 20200521
  Receipt Date: 20210929
  Transmission Date: 20211014
  Serious: Yes (Other)
  Sender: FDA-Public Use
  Company Number: US-JNJFOC-20200519715

PATIENT
  Age: 60 Year
  Sex: Female

DRUGS (9)
  1. SIMVASTATIN. [Concomitant]
     Active Substance: SIMVASTATIN
     Indication: BLOOD CHOLESTEROL INCREASED
     Dates: start: 20110717, end: 20160217
  2. RANEXA [Concomitant]
     Active Substance: RANOLAZINE
     Indication: MYOCARDIAL INFARCTION
     Dates: start: 20120707, end: 20170824
  3. CIPROFLOXACIN. [Concomitant]
     Active Substance: CIPROFLOXACIN
     Indication: CYSTITIS INTERSTITIAL
     Dates: start: 20051123, end: 20110528
  4. ELMIRON [Suspect]
     Active Substance: PENTOSAN POLYSULFATE SODIUM
     Indication: CYSTITIS INTERSTITIAL
     Route: 048
     Dates: end: 20190501
  5. CEPHALEXINE [Concomitant]
     Active Substance: CEPHALEXIN
     Indication: CYSTITIS INTERSTITIAL
     Dates: start: 20060911, end: 20190218
  6. PLAVIX [Concomitant]
     Active Substance: CLOPIDOGREL BISULFATE
     Indication: CARDIAC DISORDER
     Dates: start: 20110826, end: 20180228
  7. DEXILANT [Concomitant]
     Active Substance: DEXLANSOPRAZOLE
     Indication: GASTROOESOPHAGEAL REFLUX DISEASE
     Dates: start: 20120926, end: 20200214
  8. ELMIRON [Suspect]
     Active Substance: PENTOSAN POLYSULFATE SODIUM
     Indication: BLADDER PAIN
     Route: 048
     Dates: start: 20051107, end: 20190312
  9. HYDROXYZINE [Concomitant]
     Active Substance: HYDROXYZINE HYDROCHLORIDE
     Indication: BLADDER DISORDER
     Dates: start: 20051206, end: 20190507

REACTIONS (5)
  - Off label use [Unknown]
  - Age-related macular degeneration [Not Recovered/Not Resolved]
  - Retinitis pigmentosa [Unknown]
  - Vitreous detachment [Unknown]
  - Product use issue [Unknown]

NARRATIVE: CASE EVENT DATE: 20051107
